FAERS Safety Report 7251350-5 (Version None)
Quarter: 2011Q1

REPORT INFORMATION
  Report Type: 
  Country: None (occurrence: None)
  Receive Date: 20110128
  Receipt Date: 20110125
  Transmission Date: 20110831
  Serious: Yes (Death, Hospitalization)
  Sender: FDA-Public Use
  Company Number: US-US-EMD SERONO, INC.-7028766

PATIENT
  Sex: Female
  Weight: 71 kg

DRUGS (24)
  1. REBIF [Suspect]
     Indication: MULTIPLE SCLEROSIS
     Dates: start: 20021231, end: 20041201
  2. HYDROCHLOROTHIAZIDE [Concomitant]
     Route: 048
     Dates: end: 20070101
  3. PROTONIX [Concomitant]
     Route: 048
     Dates: end: 20070101
  4. MECLIZINE HYRDOCHLORIDE [Concomitant]
     Indication: DIZZINESS
     Route: 048
  5. AZITHROMYCIN [Concomitant]
  6. TRAMADOL HYDROCHLORIDE [Concomitant]
     Indication: PAIN
     Route: 048
     Dates: end: 20070101
  7. CLOPIDOGREL [Concomitant]
     Route: 048
     Dates: end: 20070101
  8. ALLEGRA [Concomitant]
     Indication: HYPERSENSITIVITY
     Route: 048
     Dates: end: 20070101
  9. MUCINEX [Concomitant]
     Indication: COUGH
     Route: 048
     Dates: end: 20070101
  10. NAXONEX [Concomitant]
     Route: 045
     Dates: end: 20070101
  11. PATANOL [Concomitant]
     Route: 031
     Dates: end: 20070101
  12. ALLEGRA D 24 HOUR [Concomitant]
     Indication: HYPERSENSITIVITY
     Route: 048
  13. AUGMENTIN '125' [Concomitant]
     Route: 048
     Dates: start: 20070208, end: 20070101
  14. ALBUTEROL SULFATE AUTOHALER [Concomitant]
     Route: 055
     Dates: end: 20070101
  15. ALLEGRA-D 12 HOUR [Concomitant]
     Route: 048
     Dates: end: 20070101
  16. MUCINEX [Concomitant]
     Indication: NASAL CONGESTION
  17. LISINOPRIL [Concomitant]
     Route: 048
     Dates: end: 20070101
  18. ZOCOR [Concomitant]
     Route: 048
     Dates: end: 20070101
  19. FOSAMAX [Concomitant]
     Route: 048
     Dates: end: 20070101
  20. BACLOFEN [Concomitant]
     Route: 048
     Dates: end: 20070101
  21. ENTEX SOLUTION [Concomitant]
     Route: 048
  22. LEVAQUIN [Concomitant]
     Route: 048
     Dates: end: 20070101
  23. METFORMIN HYDROCHLORIDE [Concomitant]
     Route: 048
     Dates: end: 20070101
  24. NITROFURANTOIN MACROCRYSTALLINE [Concomitant]
     Route: 048
     Dates: end: 20070101

REACTIONS (1)
  - LUNG NEOPLASM MALIGNANT [None]
